FAERS Safety Report 5913168-2 (Version None)
Quarter: 2008Q4

REPORT INFORMATION
  Report Type: 
  Country: None (occurrence: None)
  Receive Date: 20081006
  Receipt Date: 20080919
  Transmission Date: 20090506
  Serious: Yes (Hospitalization)
  Sender: FDA-Public Use
  Company Number: 8037360

PATIENT
  Age: 27 Year
  Sex: Male

DRUGS (4)
  1. METHYLPHENIDATE HCL [Suspect]
     Indication: ATTENTION DEFICIT/HYPERACTIVITY DISORDER
     Dosage: 5 MG 2/D
  2. METHYLPHENIDATE HCL [Suspect]
     Indication: ATTENTION DEFICIT/HYPERACTIVITY DISORDER
     Dosage: 5 MG, 5/D
  3. CEFDINIR [Concomitant]
  4. FEXOFENADINE W/ PSEUDOEPHEDRINE HYDROCHLORIDE [Concomitant]

REACTIONS (6)
  - ACUTE MYOCARDIAL INFARCTION [None]
  - FLATULENCE [None]
  - INCORRECT DOSE ADMINISTERED [None]
  - URINE AMPHETAMINE POSITIVE [None]
  - VASOSPASM [None]
  - VOMITING [None]
